FAERS Safety Report 8136078-1 (Version None)
Quarter: 2012Q1

REPORT INFORMATION
  Report Type: 
  Country: None (occurrence: None)
  Receive Date: 20120214
  Receipt Date: 20120203
  Transmission Date: 20120608
  Serious: Yes (Life-Threatening, Hospitalization, Other)
  Sender: FDA-Public Use
  Company Number: JP-JNJFOC-20080703164

PATIENT
  Age: 54 Year
  Sex: Female
  Weight: 59 kg

DRUGS (11)
  1. REMICADE [Suspect]
     Dosage: INFUSIONS ONE THROUGH FOUR.
     Route: 042
  2. REMICADE [Suspect]
     Indication: RHEUMATOID ARTHRITIS
     Route: 042
     Dates: start: 20080612
  3. PREDNISOLONE [Concomitant]
     Indication: RHEUMATOID ARTHRITIS
  4. CABAGIN-U [Concomitant]
     Route: 048
  5. ETANERCEPT [Suspect]
     Indication: RHEUMATOID ARTHRITIS
     Route: 065
  6. TACROLIMUS [Suspect]
     Indication: RHEUMATOID ARTHRITIS
     Route: 065
     Dates: start: 20080101
  7. FAMOTIDINE [Concomitant]
     Route: 048
  8. REMICADE [Suspect]
     Dosage: INFUSIONS ONE THROUGH FOUR.
     Route: 042
  9. REMICADE [Suspect]
     Dosage: INFUSIONS ONE THROUGH FOUR.
     Route: 042
     Dates: start: 20080125
  10. REMICADE [Suspect]
     Dosage: INFUSIONS ONE THROUGH FOUR.
     Route: 042
  11. PROGRAF [Suspect]
     Indication: PRODUCT USED FOR UNKNOWN INDICATION
     Route: 048
     Dates: end: 20080628

REACTIONS (11)
  - DRUG INEFFECTIVE [None]
  - WEIGHT DECREASED [None]
  - MALIGNANT ASCITES [None]
  - DISSEMINATED TUBERCULOSIS [None]
  - NEOPLASM MALIGNANT [None]
  - LYMPHOMA [None]
  - METASTASIS [None]
  - CONTRAINDICATION TO MEDICAL TREATMENT [None]
  - PLEURAL EFFUSION [None]
  - GENERAL PHYSICAL HEALTH DETERIORATION [None]
  - ABDOMINAL DISCOMFORT [None]
